FAERS Safety Report 9969089 (Version 1)
Quarter: 2014Q1

REPORT INFORMATION
  Report Type: Report from Study
  Country: US (occurrence: US)
  Receive Date: 20140306
  Receipt Date: 20140306
  Transmission Date: 20141002
  Serious: No
  Sender: FDA-Public Use
  Company Number: US-ABBVIE-13P-163-1145106-00

PATIENT
  Age: 23 Year
  Sex: Male

DRUGS (5)
  1. HUMIRA [Suspect]
     Indication: COLITIS ULCERATIVE
     Dates: start: 201305
  2. LIALDA [Concomitant]
     Indication: COLITIS ULCERATIVE
  3. IMODIUM [Concomitant]
     Indication: DIARRHOEA
  4. ALLEGRA [Concomitant]
     Indication: HYPERSENSITIVITY
  5. PRO AIR INHALER [Concomitant]
     Indication: ASTHMA

REACTIONS (2)
  - Drug effect incomplete [Not Recovered/Not Resolved]
  - Frequent bowel movements [Not Recovered/Not Resolved]
